FAERS Safety Report 6820801-X (Version None)
Quarter: 2010Q3

REPORT INFORMATION
  Report Type: 
  Country: None (occurrence: None)
  Receive Date: 20100707
  Receipt Date: 20070605
  Transmission Date: 20110219
  Serious: No
  Sender: FDA-Public Use
  Company Number: US-PFIZER INC-2007045741

PATIENT
  Sex: Male
  Weight: 69.09 kg

DRUGS (1)
  1. ZOLOFT [Suspect]
     Indication: ATTENTION DEFICIT/HYPERACTIVITY DISORDER
     Dates: start: 20070601

REACTIONS (4)
  - ANXIETY [None]
  - DRUG INTOLERANCE [None]
  - SLUGGISHNESS [None]
  - SOMNOLENCE [None]
